FAERS Safety Report 8989642 (Version 2)
Quarter: 2014Q1

REPORT INFORMATION
  Report Type: Report from Study
  Country: FR (occurrence: FR)
  Receive Date: 20121228
  Receipt Date: 20140123
  Transmission Date: 20141002
  Serious: Yes (Hospitalization, Other)
  Sender: FDA-Public Use
  Company Number: FR-009507513-2011SP052260

PATIENT
  Age: 50 Year
  Sex: Male
  Weight: 61 kg

DRUGS (14)
  1. BOCEPREVIR [Suspect]
     Indication: HEPATITIS C
     Dosage: 800 MG, TID
     Dates: start: 20111006, end: 20120104
  2. PEGINTERFERON ALFA-2B [Suspect]
     Indication: HEPATITIS C
     Dosage: 0.5 ML, QW
     Dates: start: 20110909, end: 20111230
  3. RIBAVIRIN [Suspect]
     Indication: HEPATITIS C
     Dosage: 400 MG, BID
     Dates: start: 20110909, end: 20120104
  4. PYOSTACINE [Suspect]
     Indication: ERYSIPELAS
     Dosage: 1000 MG, TID
     Dates: start: 20111105, end: 20111120
  5. EMTRICITABINE (+) TENOFOVIR DISOPROXIL FUMARATE [Concomitant]
     Indication: HIV INFECTION
     Dosage: 200 MG, QD
     Dates: start: 2009, end: 20111109
  6. EMTRICITABINE (+) TENOFOVIR DISOPROXIL FUMARATE [Concomitant]
     Dosage: 50 MG, QD
     Dates: start: 20111110, end: 20111128
  7. REYATAZ [Concomitant]
     Indication: HIV INFECTION
     Dosage: 300 MG, QPM
     Dates: start: 201102
  8. NORVIR [Concomitant]
     Indication: HIV INFECTION
     Dosage: 100 MG, QPM
     Dates: start: 200911
  9. AERIUS [Concomitant]
     Indication: HYPERSENSITIVITY
     Dosage: 5 MG, QPM
     Dates: start: 20111021, end: 20120420
  10. ZELITREX [Concomitant]
     Indication: ERYSIPELAS
     Dosage: 2 DF, QD
     Dates: start: 20111106, end: 20111111
  11. DOLIPRANE [Concomitant]
     Indication: MUSCULOSKELETAL STIFFNESS
     Dosage: 1 G, BID
     Dates: start: 20110916, end: 201201
  12. DEXERYL CREAM [Concomitant]
     Indication: PRURITUS
     Dosage: UNK, QD
     Dates: start: 201111, end: 20120720
  13. DIPROSONE (BETAMETHASONE DIPROPIONATE) [Concomitant]
     Indication: PRURITUS
     Dosage: UNK UNK, QD
     Dates: start: 201111, end: 201112
  14. NEUPOGEN [Concomitant]
     Indication: NEUTROPENIA
     Dosage: 30000 IU, ONCE
     Dates: start: 20111023, end: 20111023

REACTIONS (2)
  - Erysipelas [Recovered/Resolved]
  - Neutropenia [Recovered/Resolved]
